FAERS Safety Report 6229960-3 (Version None)
Quarter: 2009Q2

REPORT INFORMATION
  Report Type: 
  Country: None (occurrence: None)
  Receive Date: 20090615
  Receipt Date: 20090611
  Transmission Date: 20091009
  Serious: Yes (Other)
  Sender: FDA-Public Use
  Company Number: GB-BRISTOL-MYERS SQUIBB COMPANY-14661508

PATIENT
  Age: 51 Year
  Sex: Male

DRUGS (6)
  1. ETOPOSIDE [Suspect]
     Indication: CHEMOTHERAPY
     Route: 065
  2. CARMUSTINE [Suspect]
     Indication: CHEMOTHERAPY
     Route: 065
  3. CYTARABINE [Suspect]
     Indication: CHEMOTHERAPY
     Route: 065
  4. MELPHALAN [Suspect]
     Indication: CHEMOTHERAPY
     Route: 065
  5. RITUXIMAB [Suspect]
     Route: 065
     Dates: start: 20040801
  6. IFOSFAMIDE [Concomitant]
     Route: 065

REACTIONS (3)
  - CYTOMEGALOVIRUS ENTEROCOLITIS [None]
  - DIARRHOEA [None]
  - MUCOSAL INFLAMMATION [None]
